FAERS Safety Report 19276682 (Version 2)
Quarter: 2021Q3

REPORT INFORMATION
  Report Type: Spontaneous
  Country: US (occurrence: US)
  Receive Date: 20210519
  Receipt Date: 20210922
  Transmission Date: 20211014
  Serious: Yes (Other)
  Sender: FDA-Public Use
  Company Number: US-INCYTE CORPORATION-2021IN004336

PATIENT

DRUGS (2)
  1. JAKAFI [Suspect]
     Active Substance: RUXOLITINIB
     Indication: POLYCYTHAEMIA VERA
     Dosage: 10MG EVERY MORNING, 5MG EVERY EVENING
     Route: 048
     Dates: start: 20200918
  2. JAKAFI [Suspect]
     Active Substance: RUXOLITINIB
     Dosage: 5 MILLIGRAM, BID
     Route: 048
     Dates: start: 20200918

REACTIONS (3)
  - Kidney infection [Recovered/Resolved]
  - Skin cancer [Unknown]
  - Platelet count abnormal [Unknown]

NARRATIVE: CASE EVENT DATE: 202105
